FAERS Safety Report 6254266-6 (Version None)
Quarter: 2009Q3

REPORT INFORMATION
  Report Type: 
  Country: None (occurrence: None)
  Receive Date: 20090702
  Receipt Date: 20090622
  Transmission Date: 20100115
  Serious: Yes (Other)
  Sender: FDA-Public Use
  Company Number: CA-JNJFOC-20090607768

PATIENT
  Age: 40 Year
  Sex: Male
  Weight: 76 kg

DRUGS (3)
  1. REMICADE [Suspect]
     Indication: CROHN'S DISEASE
     Route: 042
  2. PENTASA [Concomitant]
  3. CORTISONE [Concomitant]

REACTIONS (3)
  - AMNESIA [None]
  - DIZZINESS [None]
  - TREMOR [None]
